FAERS Safety Report 17543938 (Version 1)
Quarter: 2020Q1

REPORT INFORMATION
  Report Type: Spontaneous
  Country: SE (occurrence: SE)
  Receive Date: 20200316
  Receipt Date: 20200316
  Transmission Date: 20200409
  Serious: Yes (Hospitalization)
  Sender: FDA-Public Use
  Company Number: SE-TEVA-2020-SE-1199435

PATIENT
  Age: 21 Month
  Sex: Male

DRUGS (4)
  1. CARBOPLATIN. [Suspect]
     Active Substance: CARBOPLATIN
     Indication: OPTIC GLIOMA
     Route: 042
     Dates: start: 20200113, end: 20200113
  2. VINCRISTINE [Suspect]
     Active Substance: VINCRISTINE
     Indication: OPTIC GLIOMA
     Route: 042
     Dates: start: 20200113, end: 20200113
  3. CARBOPLATIN. [Suspect]
     Active Substance: CARBOPLATIN
     Dosage: ^302.5 MG^
     Route: 042
     Dates: start: 20200210, end: 20200210
  4. VINCRISTINE [Suspect]
     Active Substance: VINCRISTINE
     Dosage: ^0.82 MG^
     Route: 042
     Dates: start: 20200210, end: 20200210

REACTIONS (4)
  - Pyrexia [Recovered/Resolved]
  - Vomiting [Recovered/Resolved]
  - Urticaria [Recovered/Resolved]
  - Skin reaction [Recovered/Resolved]

NARRATIVE: CASE EVENT DATE: 20200113
